FAERS Safety Report 13281418 (Version 1)
Quarter: 2017Q1

REPORT INFORMATION
  Report Type: Spontaneous
  Country: US (occurrence: US)
  Receive Date: 20170228
  Receipt Date: 20170228
  Transmission Date: 20170428
  Serious: Yes (Other)
  Sender: FDA-Public Use
  Company Number: None

PATIENT
  Age: 31 Year
  Sex: Female
  Weight: 74.91 kg

DRUGS (1)
  1. SKYLA [Suspect]
     Active Substance: LEVONORGESTREL
     Dates: start: 20160212, end: 20160227

REACTIONS (4)
  - Dyspareunia [None]
  - Coital bleeding [None]
  - Device dislocation [None]
  - Vaginal haemorrhage [None]

NARRATIVE: CASE EVENT DATE: 20170228
